FAERS Safety Report 4702497-6 (Version None)
Quarter: 2005Q2

REPORT INFORMATION
  Report Type: 
  Country: None (occurrence: None)
  Receive Date: 20050629
  Receipt Date: 20050621
  Transmission Date: 20051028
  Serious: Yes (Hospitalization)
  Sender: FDA-Public Use
  Company Number: US-JNJFOC-20050606174

PATIENT
  Sex: Female
  Weight: 34.02 kg

DRUGS (4)
  1. REMICADE [Suspect]
     Indication: CROHN'S DISEASE
     Route: 042
  2. ATIVAN [Concomitant]
  3. PENTASA [Concomitant]
  4. MICOSTATIN [Concomitant]

REACTIONS (4)
  - DISORIENTATION [None]
  - FISTULA [None]
  - OEDEMA PERIPHERAL [None]
  - WEIGHT DECREASED [None]
